FAERS Safety Report 5889093-2 (Version None)
Quarter: 2008Q3

REPORT INFORMATION
  Report Type: 
  Country: None (occurrence: None)
  Receive Date: 20080919
  Receipt Date: 20040623
  Transmission Date: 20090109
  Serious: No
  Sender: FDA-Public Use
  Company Number: US-BAYER-200831013NA

PATIENT

DRUGS (1)
  1. AVELOX [Suspect]
     Indication: EAR INFECTION
     Route: 065
     Dates: start: 20040501, end: 20040601

REACTIONS (5)
  - AGEUSIA [None]
  - DRY MOUTH [None]
  - DYSGEUSIA [None]
  - LIP SWELLING [None]
  - SWOLLEN TONGUE [None]
